FAERS Safety Report 10073125 (Version 1)
Quarter: 2014Q2

REPORT INFORMATION
  Report Type: Report from Study
  Country: DE (occurrence: DE)
  Receive Date: 20140411
  Receipt Date: 20140411
  Transmission Date: 20141212
  Serious: Yes (Hospitalization, Other)
  Sender: FDA-Public Use
  Company Number: DE-GLAXOSMITHKLINE-B0909045A

PATIENT
  Age: 70 Year
  Sex: Male

DRUGS (10)
  1. CHLORAMBUCIL [Suspect]
     Indication: CHRONIC LYMPHOCYTIC LEUKAEMIA
     Route: 048
     Dates: start: 20111129, end: 20120221
  2. RITUXIMAB [Suspect]
     Indication: CHRONIC LYMPHOCYTIC LEUKAEMIA
     Dosage: 1136MG PER DAY
     Route: 042
     Dates: start: 20111129, end: 20120320
  3. OFATUMUMAB [Suspect]
     Indication: HAEMOLYSIS
     Route: 065
     Dates: start: 20120723, end: 20130115
  4. HYDROMORPHONE [Concomitant]
     Dates: start: 20110630
  5. METAMIZOL [Concomitant]
     Dates: start: 20110630
  6. LYRICA [Concomitant]
     Dates: start: 201103
  7. ATMADISC [Concomitant]
     Dates: start: 201103
  8. SIMVASTATIN [Concomitant]
     Dates: start: 2008
  9. ESOMEPRAZOLE [Concomitant]
     Dosage: 20MG PER DAY
     Dates: start: 2011
  10. RAMIPRIL [Concomitant]
     Dates: start: 2008

REACTIONS (1)
  - Basal cell carcinoma [Recovered/Resolved]
